FAERS Safety Report 24804515 (Version 1)
Quarter: 2025Q1

REPORT INFORMATION
  Report Type: Spontaneous
  Country: NZ (occurrence: NZ)
  Receive Date: 20250103
  Receipt Date: 20250103
  Transmission Date: 20250409
  Serious: Yes (Disabling)
  Sender: AMERICAN REGENT
  Company Number: NZ-AMERICAN REGENT INC-2024004889

PATIENT
  Age: 35 Year
  Sex: Female

DRUGS (1)
  1. FERINJECT [Suspect]
     Active Substance: FERRIC CARBOXYMALTOSE
     Indication: Product used for unknown indication
     Route: 042
     Dates: start: 20231102, end: 20231102

REACTIONS (5)
  - Asthenia [Recovering/Resolving]
  - Lethargy [Recovering/Resolving]
  - Brain fog [Recovering/Resolving]
  - Hypophosphataemia [Recovering/Resolving]
  - Syncope [Recovering/Resolving]
